FAERS Safety Report 17441511 (Version 1)
Quarter: 2020Q1

REPORT INFORMATION
  Report Type: Spontaneous
  Country: US (occurrence: US)
  Receive Date: 20200220
  Receipt Date: 20200220
  Transmission Date: 20200409
  Serious: No
  Sender: FDA-Public Use
  Company Number: US-009507513-2002USA007463

PATIENT
  Sex: Male

DRUGS (5)
  1. VRAYLAR [Suspect]
     Active Substance: CARIPRAZINE
     Dosage: UNK
  2. SINEMET [Suspect]
     Active Substance: CARBIDOPA\LEVODOPA
     Indication: PARKINSON^S DISEASE
     Dosage: UNK
     Route: 048
     Dates: start: 2005
  3. TRILEPTAL [Concomitant]
     Active Substance: OXCARBAZEPINE
     Dosage: UNK
  4. SERTRALINE HYDROCHLORIDE. [Concomitant]
     Active Substance: SERTRALINE HYDROCHLORIDE
     Dosage: UNK
  5. ENTACAPONE. [Concomitant]
     Active Substance: ENTACAPONE
     Dosage: UNK

REACTIONS (8)
  - Anger [Unknown]
  - Drug ineffective [Unknown]
  - Hypokinesia [Unknown]
  - Malaise [Unknown]
  - Mental disorder [Unknown]
  - Fear [Unknown]
  - Musculoskeletal stiffness [Unknown]
  - Fatigue [Unknown]
